FAERS Safety Report 18717139 (Version 4)
Quarter: 2021Q1

REPORT INFORMATION
  Report Type: Spontaneous
  Country: US (occurrence: US)
  Receive Date: 20210108
  Receipt Date: 20210129
  Transmission Date: 20210419
  Serious: Yes (Hospitalization, Other)
  Sender: FDA-Public Use
  Company Number: US-SA-2021SA003076

PATIENT
  Age: 75 Year
  Sex: Female

DRUGS (1)
  1. TOUJEO [Suspect]
     Active Substance: INSULIN GLARGINE
     Indication: TYPE 2 DIABETES MELLITUS
     Dosage: 14 UNITS ONCE DAILY
     Route: 065
     Dates: start: 2016

REACTIONS (8)
  - Blood glucose increased [Unknown]
  - Glycosylated haemoglobin increased [Unknown]
  - Cardiac disorder [Unknown]
  - Regurgitation [Unknown]
  - Inflammation [Unknown]
  - Fall [Unknown]
  - Cardiac failure [Unknown]
  - Coma [Recovered/Resolved]

NARRATIVE: CASE EVENT DATE: 202009
